FAERS Safety Report 5061804-8 (Version None)
Quarter: 2006Q3

REPORT INFORMATION
  Report Type: 
  Country: None (occurrence: None)
  Receive Date: 20060703
  Receipt Date: 20060125
  Transmission Date: 20061208
  Serious: No
  Sender: FDA-Public Use
  Company Number: 2006S1000778

PATIENT
  Age: 29 Year
  Sex: Female
  Weight: 71.2147 kg

DRUGS (12)
  1. CLOZAPINE [Suspect]
     Indication: SCHIZOAFFECTIVE DISORDER
     Dosage: SEE IMAGE
     Route: 048
  2. FUROSEMIDE [Suspect]
     Indication: SCHIZOAFFECTIVE DISORDER
     Dosage: 20 MG;QD;ORAL
     Route: 048
     Dates: start: 20051216, end: 20060119
  3. VITAMINS NOS [Concomitant]
  4. DOCUSATE SODIUM/SENNA [Concomitant]
  5. ACETYLSALICYLIC ACID SRT [Concomitant]
  6. ATORVASTATIN CALCIUM [Concomitant]
  7. ATENOLOL [Concomitant]
  8. LACTULOSE [Concomitant]
  9. IRON [Concomitant]
  10. TRIHEXYPHENIDYL HYDROCHLORIDE [Concomitant]
  11. LORATADINE [Concomitant]
  12. PHENYTOIN SODIUM [Concomitant]

REACTIONS (1)
  - GRANULOCYTOPENIA [None]
